FAERS Safety Report 10186652 (Version 2)
Quarter: 2014Q3

REPORT INFORMATION
  Report Type: Spontaneous
  Country: US (occurrence: US)
  Receive Date: 20140521
  Receipt Date: 20140929
  Transmission Date: 20150326
  Serious: No
  Sender: FDA-Public Use
  Company Number: US-GILEAD-2014-0102952

PATIENT
  Age: 63 Year
  Sex: Female

DRUGS (2)
  1. LETAIRIS [Suspect]
     Active Substance: AMBRISENTAN
     Indication: PULMONARY ARTERIAL HYPERTENSION
     Dosage: 10 MG, QD
     Route: 065
     Dates: start: 20130814
  2. ADCIRCA [Concomitant]
     Active Substance: TADALAFIL

REACTIONS (3)
  - Oedema [Unknown]
  - Wheezing [Unknown]
  - Rash [Unknown]
